FAERS Safety Report 8490715-0 (Version None)
Quarter: 2012Q3

REPORT INFORMATION
  Report Type: 
  Country: None (occurrence: None)
  Receive Date: 20120706
  Receipt Date: 20120626
  Transmission Date: 20120928
  Serious: Yes (Hospitalization)
  Sender: FDA-Public Use
  Company Number: IT-PAR PHARMACEUTICAL, INC-2012SCPR004467

PATIENT

DRUGS (4)
  1. DOMPERIDONE [Concomitant]
     Indication: GASTROOESOPHAGEAL REFLUX DISEASE
     Dosage: UNK, UNKNOWN
     Route: 065
  2. RANITIDINE [Concomitant]
     Indication: GASTROOESOPHAGEAL REFLUX DISEASE
     Dosage: UNK, UNKNOWN
     Route: 065
  3. PROPRANOLOL [Suspect]
     Indication: HAEMANGIOMA
     Dosage: 2 MG/KG/DAY, DIVIDED INTO 4 DOSES
     Route: 048
  4. PROPRANOLOL [Suspect]
     Dosage: 2 MG/KG/DAY, DIVIDED INTO 2 DOSES
     Route: 048

REACTIONS (1)
  - TUMOUR LYSIS SYNDROME [None]
